FAERS Safety Report 5158738-7 (Version None)
Quarter: 2006Q4

REPORT INFORMATION
  Report Type: 
  Country: None (occurrence: None)
  Receive Date: 20061128
  Receipt Date: 20061122
  Transmission Date: 20070319
  Serious: Yes (Life-Threatening)
  Sender: FDA-Public Use
  Company Number: US-JNJFOC-20060906513

PATIENT
  Sex: Female
  Weight: 70 kg

DRUGS (4)
  1. REOPRO [Suspect]
     Indication: ACUTE MYOCARDIAL INFARCTION
     Route: 042
  2. ATROPINE [Concomitant]
  3. FENTANYL [Concomitant]
  4. HEPARIN [Concomitant]
     Indication: ACUTE MYOCARDIAL INFARCTION

REACTIONS (3)
  - CORONARY ARTERY DISSECTION [None]
  - DIABETES MELLITUS [None]
  - VENTRICULAR TACHYCARDIA [None]
